FAERS Safety Report 24764024 (Version 1)
Quarter: 2024Q4

REPORT INFORMATION
  Report Type: Spontaneous
  Country: CZ (occurrence: CZ)
  Receive Date: 20241223
  Receipt Date: 20241223
  Transmission Date: 20250115
  Serious: Yes (Hospitalization, Other)
  Sender: SANDOZ
  Company Number: CZ-NOVPHSZ-PHHY2019CZ095375

PATIENT
  Sex: Male

DRUGS (36)
  1. AVASTIN [Suspect]
     Active Substance: BEVACIZUMAB
     Indication: Rectal cancer
     Dosage: UNK
     Route: 065
  2. AVASTIN [Suspect]
     Active Substance: BEVACIZUMAB
     Indication: Adenocarcinoma of colon
  3. AVASTIN [Suspect]
     Active Substance: BEVACIZUMAB
     Indication: Metastatic neoplasm
  4. LEUCOVORIN CALCIUM [Suspect]
     Active Substance: LEUCOVORIN CALCIUM
     Indication: Colorectal cancer metastatic
     Dosage: UNK, 1 CYCLIC
     Route: 065
  5. CAPECITABINE [Suspect]
     Active Substance: CAPECITABINE
     Indication: Adenocarcinoma of colon
     Dosage: 3-0-31500 MG /2 X PER DAYSTRENGTH: 500 MG
     Route: 048
  6. CAPECITABINE [Suspect]
     Active Substance: CAPECITABINE
     Indication: Rectal cancer
     Dosage: 500 MG, 3-0-3
     Route: 048
  7. CAPECITABINE [Suspect]
     Active Substance: CAPECITABINE
     Indication: Rectal cancer
  8. CETUXIMAB [Suspect]
     Active Substance: CETUXIMAB
     Route: 065
  9. CETUXIMAB [Suspect]
     Active Substance: CETUXIMAB
     Indication: Adenocarcinoma of colon
     Dosage: UNK
     Route: 065
  10. FLUOROURACIL [Suspect]
     Active Substance: FLUOROURACIL
     Indication: Metastases to lung
     Dosage: UNK
     Route: 065
     Dates: start: 201712
  11. FLUOROURACIL [Suspect]
     Active Substance: FLUOROURACIL
     Indication: Rectal cancer
     Route: 065
  12. FLUOROURACIL [Suspect]
     Active Substance: FLUOROURACIL
     Indication: Adenocarcinoma of colon
  13. LEUCOVORIN [Suspect]
     Active Substance: LEUCOVORIN\LEUCOVORIN CALCIUM
     Indication: Adenocarcinoma of colon
     Dosage: FOLFIRI REGIMEN
     Route: 065
  14. LEUCOVORIN [Suspect]
     Active Substance: LEUCOVORIN\LEUCOVORIN CALCIUM
     Indication: Metastases to lung
     Dosage: UNK, CYCLIC
     Route: 065
     Dates: start: 201712
  15. LEUCOVORIN [Suspect]
     Active Substance: LEUCOVORIN\LEUCOVORIN CALCIUM
     Indication: Rectal cancer
     Dosage: UNK, CYCLIC (14 CYCLES IN FOLFIRI REGIMEN)
     Route: 042
     Dates: start: 201802
  16. LEUCOVORIN [Suspect]
     Active Substance: LEUCOVORIN\LEUCOVORIN CALCIUM
     Indication: Metastases to lung
     Route: 065
  17. IRINOTECAN HYDROCHLORIDE [Suspect]
     Active Substance: IRINOTECAN HYDROCHLORIDE
     Indication: Colorectal cancer metastatic
     Dosage: UNK, 1CYCLIC
     Route: 065
     Dates: start: 201712
  18. IRINOTECAN HYDROCHLORIDE [Suspect]
     Active Substance: IRINOTECAN HYDROCHLORIDE
     Indication: Metastases to lung
     Dosage: UNK, CYCLIC (14 CYCLES IN FOLFIRI REGIMEN)
     Route: 042
     Dates: start: 201802
  19. IRINOTECAN HYDROCHLORIDE [Suspect]
     Active Substance: IRINOTECAN HYDROCHLORIDE
     Indication: Adenocarcinoma of colon
     Route: 065
  20. IRINOTECAN HYDROCHLORIDE [Suspect]
     Active Substance: IRINOTECAN HYDROCHLORIDE
     Indication: Metastases to lung
  21. IRINOTECAN HYDROCHLORIDE [Suspect]
     Active Substance: IRINOTECAN HYDROCHLORIDE
     Indication: Rectal cancer
  22. OXALIPLATIN [Suspect]
     Active Substance: OXALIPLATIN
     Indication: Metastatic neoplasm
     Dosage: UNK UNK, CYCLIC
     Route: 065
     Dates: start: 201703
  23. OXALIPLATIN [Suspect]
     Active Substance: OXALIPLATIN
     Indication: Adenocarcinoma
  24. OXALIPLATIN [Suspect]
     Active Substance: OXALIPLATIN
     Indication: Adenocarcinoma of colon
  25. OXALIPLATIN [Suspect]
     Active Substance: OXALIPLATIN
     Indication: Metastatic neoplasm
  26. OXALIPLATIN [Suspect]
     Active Substance: OXALIPLATIN
     Indication: Rectal cancer
  27. TIPIRACIL [Suspect]
     Active Substance: TIPIRACIL
     Indication: Rectal cancer
     Dosage: 20 MG, BID
     Route: 065
  28. TRIFLURIDINE [Suspect]
     Active Substance: TRIFLURIDINE
     Indication: Rectal cancer
     Dosage: 20 MG, BID
     Route: 065
  29. TRIFLURIDINE [Suspect]
     Active Substance: TRIFLURIDINE
     Indication: Metastases to lung
  30. XELODA [Suspect]
     Active Substance: CAPECITABINE
     Indication: Metastatic neoplasm
     Dosage: UNK
     Route: 065
  31. XELODA [Suspect]
     Active Substance: CAPECITABINE
     Indication: Rectal cancer
     Route: 065
  32. XELODA [Suspect]
     Active Substance: CAPECITABINE
     Indication: Metastatic neoplasm
  33. ZALTRAP [Suspect]
     Active Substance: ZIV-AFLIBERCEPT
     Indication: Product used for unknown indication
     Route: 065
  34. AFLIBERCEPT [Concomitant]
     Active Substance: AFLIBERCEPT
     Indication: Adenocarcinoma
     Dosage: UNK
     Route: 065
  35. PERINDOPRIL [Concomitant]
     Active Substance: PERINDOPRIL
     Indication: Hypertension
     Dosage: UNK
     Route: 065
  36. PERINDOPRIL [Concomitant]
     Active Substance: PERINDOPRIL
     Indication: Hypertension
     Route: 065

REACTIONS (21)
  - Peritonsillar abscess [Recovered/Resolved]
  - Neuropathy peripheral [Not Recovered/Not Resolved]
  - Leukopenia [Unknown]
  - Neutropenia [Unknown]
  - Proteinuria [Unknown]
  - Polyneuropathy [Unknown]
  - Hypertension [Recovered/Resolved]
  - Toxicity to various agents [Unknown]
  - Dyspepsia [Unknown]
  - Weight decreased [Unknown]
  - Disease progression [Unknown]
  - Mucosal inflammation [Unknown]
  - Diarrhoea [Unknown]
  - Skin toxicity [Unknown]
  - Fatigue [Unknown]
  - Alopecia [Unknown]
  - Gastrointestinal toxicity [Unknown]
  - Palmar-plantar erythrodysaesthesia syndrome [Unknown]
  - Condition aggravated [Unknown]
  - Defaecation urgency [Unknown]
  - Therapy partial responder [Unknown]

NARRATIVE: CASE EVENT DATE: 20160101
